FAERS Safety Report 8105293-5 (Version None)
Quarter: 2012Q1

REPORT INFORMATION
  Report Type: 
  Country: None (occurrence: None)
  Receive Date: 20120201
  Receipt Date: 20120130
  Transmission Date: 20120608
  Serious: Yes (Other)
  Sender: FDA-Public Use
  Company Number: US-PFIZER INC-2012025238

PATIENT
  Sex: Female
  Weight: 54.422 kg

DRUGS (2)
  1. WELLBUTRIN [Suspect]
     Dosage: UNK, 1X/DAY
     Route: 048
     Dates: start: 20070101
  2. XANAX [Suspect]
     Indication: PANIC ATTACK
     Dosage: 0.5 MG, 1X/DAY
     Route: 048
     Dates: start: 20030101

REACTIONS (17)
  - GASTRIC HAEMORRHAGE [None]
  - MASS [None]
  - MALAISE [None]
  - ABASIA [None]
  - DISTURBANCE IN ATTENTION [None]
  - PSYCHOMOTOR HYPERACTIVITY [None]
  - BLOOD PRESSURE INCREASED [None]
  - PAIN [None]
  - NERVOUSNESS [None]
  - DYSPEPSIA [None]
  - INSOMNIA [None]
  - HYPERHIDROSIS [None]
  - NAUSEA [None]
  - WEIGHT DECREASED [None]
  - HALLUCINATION, VISUAL [None]
  - HERNIA [None]
  - TREMOR [None]
